FAERS Safety Report 7034845-9 (Version None)
Quarter: 2010Q4

REPORT INFORMATION
  Report Type: 
  Country: None (occurrence: None)
  Receive Date: 20101008
  Receipt Date: 20101006
  Transmission Date: 20110411
  Serious: Yes (Other)
  Sender: FDA-Public Use
  Company Number: FR-SANOFI-AVENTIS-2010SA059914

PATIENT
  Age: 63 Year
  Sex: Male

DRUGS (5)
  1. STILNOX [Suspect]
     Route: 048
     Dates: start: 20100506, end: 20100506
  2. PARACETAMOL [Concomitant]
     Indication: PAIN
     Route: 048
     Dates: start: 20100506, end: 20100506
  3. CORTISONE [Concomitant]
     Dates: start: 20100506, end: 20100506
  4. LYRICA [Concomitant]
  5. PLAVIX [Concomitant]

REACTIONS (2)
  - INCOHERENT [None]
  - MALAISE [None]
